FAERS Safety Report 5226553-1 (Version None)
Quarter: 2007Q1

REPORT INFORMATION
  Report Type: 
  Country: None (occurrence: None)
  Receive Date: 20070201
  Receipt Date: 20070125
  Transmission Date: 20070707
  Serious: Yes (Life-Threatening, Hospitalization)
  Sender: FDA-Public Use
  Company Number: US-SANOFI-SYNTHELABO-A03200700666

PATIENT
  Age: 73 Year
  Sex: Female

DRUGS (4)
  1. ELOXATIN [Suspect]
     Indication: COLORECTAL CANCER METASTATIC
     Route: 042
     Dates: start: 20070102, end: 20070102
  2. SOLU-MEDROL [Concomitant]
     Route: 042
  3. ZANTAC [Concomitant]
     Route: 042
  4. BENADRYL [Concomitant]
     Route: 042

REACTIONS (10)
  - ANAPHYLACTIC REACTION [None]
  - ANGIOEDEMA [None]
  - BRADYCARDIA [None]
  - ERYTHEMA [None]
  - HYPERSENSITIVITY [None]
  - HYPOTENSION [None]
  - PHARYNGEAL OEDEMA [None]
  - RESPIRATORY DISTRESS [None]
  - VENTRICULAR FIBRILLATION [None]
  - VENTRICULAR TACHYCARDIA [None]
